FAERS Safety Report 6996143-9 (Version None)
Quarter: 2010Q3

REPORT INFORMATION
  Report Type: 
  Country: None (occurrence: None)
  Receive Date: 20100918
  Receipt Date: 20090107
  Transmission Date: 20110219
  Serious: No
  Sender: FDA-Public Use
  Company Number: US-WYE-H07633409

PATIENT
  Sex: Female

DRUGS (3)
  1. EFFEXOR XR [Suspect]
     Dates: start: 20080101, end: 20080101
  2. EFFEXOR XR [Suspect]
     Dates: start: 20081201, end: 20090101
  3. PRISTIQ [Concomitant]
     Route: 048
     Dates: start: 20081228

REACTIONS (2)
  - DRUG WITHDRAWAL SYNDROME [None]
  - PALPITATIONS [None]
